FAERS Safety Report 15607057 (Version 2)
Quarter: 2021Q2

REPORT INFORMATION
  Report Type: Report from Study
  Country: TZ (occurrence: RW)
  Receive Date: 20181112
  Receipt Date: 20210608
  Transmission Date: 20210716
  Serious: Yes (Death, Other)
  Sender: FDA-Public Use
  Company Number: TZ-PFIZER INC-2018462430

PATIENT

DRUGS (13)
  1. METHOTREXATE SODIUM. [Suspect]
     Active Substance: METHOTREXATE SODIUM
     Indication: ACUTE LYMPHOCYTIC LEUKAEMIA
     Dosage: UNK, (INDUCTION, EXTRA IT MTX ON DAYS 15, 22 IF CNS3)
     Route: 037
  2. METHOTREXATE SODIUM. [Suspect]
     Active Substance: METHOTREXATE SODIUM
     Dosage: 20 MG/M2, CYCLIC, (MAINTENANCE, STARTING DAY 1, DAYS 1, 29 FOR FIRST FOUR CYCLES THEN DAY 1 ONLY)
     Route: 037
  3. 6?MERCAPTOPURINE MONOHYDRATE [Suspect]
     Active Substance: MERCAPTOPURINE
     Indication: ACUTE LYMPHOCYTIC LEUKAEMIA
     Dosage: 75 MG/M2, UNK (CONSOLIDATION, DAY 1?28)
  4. CYCLOPHOSPHAMIDE. [Suspect]
     Active Substance: CYCLOPHOSPHAMIDE
     Indication: ACUTE LYMPHOCYTIC LEUKAEMIA
     Dosage: UNK
  5. 6?MERCAPTOPURINE MONOHYDRATE [Suspect]
     Active Substance: MERCAPTOPURINE
     Dosage: 75 MG/M2, CYCLIC, (MAINTENANCE, DAY 1?84)
  6. VINCRISTINE [Suspect]
     Active Substance: VINCRISTINE
     Indication: ACUTE LYMPHOCYTIC LEUKAEMIA
     Dosage: 1.5 MG/M2, CYCLIC (INDUCTION, DAYS 8, 15, 22, 29)
  7. DEXAMETHASONE. [Suspect]
     Active Substance: DEXAMETHASONE
     Indication: ACUTE LYMPHOCYTIC LEUKAEMIA
     Dosage: 6 MG/M2, DAILY (MAINTENANCE, DAYS 1?5, 29?33, 57?61)
  8. PREDNISONE. [Suspect]
     Active Substance: PREDNISONE
     Indication: ACUTE LYMPHOCYTIC LEUKAEMIA
     Dosage: 60 MG/M2, DAILY (INDUCTION (4 WEEKS), PREDNISONE PROPHASE, DAYS 1?7)
  9. METHOTREXATE SODIUM. [Suspect]
     Active Substance: METHOTREXATE SODIUM
     Dosage: UNK (CONSOLIDATION, DAYS 1, 8, 15)
     Route: 037
  10. PREDNISONE. [Suspect]
     Active Substance: PREDNISONE
     Dosage: 40 MG/M2, DAILY (INDUCTION (4 WEEKS), DAYS 8?29)
  11. VINCRISTINE [Suspect]
     Active Substance: VINCRISTINE
     Dosage: 1.5 MG/M2, CYCLIC (MAINTENANCE, DAYS 1, 29, 57)
  12. L?ASPARAGINASE [Suspect]
     Active Substance: ASPARAGINASE
     Indication: ACUTE LYMPHOCYTIC LEUKAEMIA
     Dosage: UNK, 6,000 IU/M^2 X 3 WEEKS STARTING AT DAY 8)
  13. VINCRISTINE [Suspect]
     Active Substance: VINCRISTINE
     Dosage: 1.5 MG/M2, UNK (CONSOLIDATION, DAY 1)

REACTIONS (1)
  - Death [Fatal]
